FAERS Safety Report 8026769-5 (Version None)
Quarter: 2012Q1

REPORT INFORMATION
  Report Type: 
  Country: None (occurrence: None)
  Receive Date: 20120106
  Receipt Date: 20111229
  Transmission Date: 20120608
  Serious: No
  Sender: FDA-Public Use
  Company Number: US-BIOGENIDEC-2011BI049002

PATIENT
  Age: 54 Year
  Sex: Female

DRUGS (1)
  1. AVONEX [Suspect]
     Indication: MULTIPLE SCLEROSIS
     Route: 030
     Dates: start: 20021007

REACTIONS (5)
  - DEPRESSED MOOD [None]
  - SUTURE INSERTION [None]
  - NAIL AVULSION [None]
  - HAND FRACTURE [None]
  - FALL [None]
